FAERS Safety Report 8264969 (Version 7)
Quarter: 2012Q4

REPORT INFORMATION
  Report Type: 
  Country: US (occurrence: US)
  Receive Date: 20111128
  Receipt Date: 20120926
  Transmission Date: 20130627
  Serious: Yes (Hospitalization, Disabling, Other)
  Sender: FDA-Public Use
  Company Number: US-009507513-1111USA03161

PATIENT

DRUGS (2)
  1. FOSAMAX [Suspect]
     Indication: OSTEOPENIA
     Dosage: 70 mg, UNK
     Route: 048
     Dates: start: 2001, end: 20070921
  2. BONIVA [Suspect]

REACTIONS (20)
  - Femur fracture [Recovering/Resolving]
  - Thymectomy [Unknown]
  - Post procedural haemorrhage [Unknown]
  - Stress fracture [Unknown]
  - Lumbar spinal stenosis [Unknown]
  - Uterine disorder [Unknown]
  - Osteoporosis [Unknown]
  - Large intestine polyp [Unknown]
  - Diverticulum intestinal [Unknown]
  - Thymoma [Unknown]
  - Joint injury [Unknown]
  - Haemorrhage [Unknown]
  - Gastrointestinal ulcer [Unknown]
  - Osteoarthritis [Unknown]
  - Paraesthesia [Unknown]
  - Contusion [Unknown]
  - Joint swelling [Unknown]
  - Gastrooesophageal reflux disease [Unknown]
  - Hiatus hernia [Unknown]
  - Dyspnoea [Unknown]
